FAERS Safety Report 5898873-9 (Version None)
Quarter: 2008Q3

REPORT INFORMATION
  Report Type: 
  Country: None (occurrence: None)
  Receive Date: 20080925
  Receipt Date: 20080917
  Transmission Date: 20090109
  Serious: Yes (Other)
  Sender: FDA-Public Use
  Company Number: US-JNJFOC-20080506252

PATIENT
  Sex: Male
  Weight: 88.45 kg

DRUGS (1)
  1. TOPAMAX [Suspect]
     Indication: MIGRAINE PROPHYLAXIS
     Route: 048

REACTIONS (3)
  - APHASIA [None]
  - DISTURBANCE IN ATTENTION [None]
  - FATIGUE [None]
